FAERS Safety Report 13222318 (Version 1)
Quarter: 2017Q1

REPORT INFORMATION
  Report Type: Spontaneous
  Country: US (occurrence: US)
  Receive Date: 20170211
  Receipt Date: 20170211
  Transmission Date: 20170428
  Serious: No
  Sender: FDA-Public Use
  Company Number: US-TEVA-737689ACC

PATIENT
  Age: 46 Year
  Sex: Female

DRUGS (18)
  1. TOPIRAMATE. [Concomitant]
     Active Substance: TOPIRAMATE
  2. LISINOPRIL. [Concomitant]
     Active Substance: LISINOPRIL
  3. TRAMADOL. [Concomitant]
     Active Substance: TRAMADOL
  4. TIZANIDINE. [Concomitant]
     Active Substance: TIZANIDINE
  5. COPAXONE [Suspect]
     Active Substance: GLATIRAMER ACETATE
     Indication: MULTIPLE SCLEROSIS
     Route: 058
     Dates: start: 20140124
  6. AMPYRA [Concomitant]
     Active Substance: DALFAMPRIDINE
  7. BUPROPION. [Concomitant]
     Active Substance: BUPROPION
  8. VITAMIN D3 [Concomitant]
     Active Substance: CHOLECALCIFEROL
  9. LYRICA [Concomitant]
     Active Substance: PREGABALIN
  10. CYANOCOBALAMIN. [Concomitant]
     Active Substance: CYANOCOBALAMIN
  11. DULOXETINE. [Concomitant]
     Active Substance: DULOXETINE
  12. NEURONTIN [Concomitant]
     Active Substance: GABAPENTIN
  13. PROBIOTICA [Concomitant]
     Active Substance: PROBIOTICS NOS
  14. CRANBERRY. [Concomitant]
     Active Substance: CRANBERRY
  15. VITAMIN B12 [Concomitant]
     Active Substance: CYANOCOBALAMIN
  16. MONTELUKAST [Concomitant]
     Active Substance: MONTELUKAST SODIUM
  17. ALPRAZOLAM. [Concomitant]
     Active Substance: ALPRAZOLAM
  18. FLUOXETINE [Concomitant]
     Active Substance: FLUOXETINE HYDROCHLORIDE

REACTIONS (1)
  - Fall [Unknown]

NARRATIVE: CASE EVENT DATE: 20170106
